FAERS Safety Report 6269950-8 (Version None)
Quarter: 2009Q3

REPORT INFORMATION
  Report Type: 
  Country: None (occurrence: None)
  Receive Date: 20090716
  Receipt Date: 20090708
  Transmission Date: 20100115
  Serious: Yes (Disabling)
  Sender: FDA-Public Use
  Company Number: CO-ABBOTT-09P-036-0584208-00

PATIENT
  Age: 31 Year
  Sex: Male

DRUGS (3)
  1. KALETRA [Suspect]
     Indication: HIV INFECTION
     Dosage: 2 TABLETS, 2 IN 1 DAY
     Route: 048
     Dates: start: 20090201, end: 20090301
  2. ABACAVIR [Concomitant]
     Indication: HIV INFECTION
     Route: 048
     Dates: start: 20080101
  3. DIDANOSINE [Concomitant]
     Indication: HIV INFECTION
     Route: 048
     Dates: start: 20080101

REACTIONS (4)
  - DIARRHOEA [None]
  - RECTAL HAEMORRHAGE [None]
  - VERTIGO [None]
  - VOMITING [None]
